FAERS Safety Report 25006627 (Version 2)
Quarter: 2025Q1

REPORT INFORMATION
  Report Type: Report from Study
  Country: CA (occurrence: CA)
  Receive Date: 20250225
  Receipt Date: 20250305
  Transmission Date: 20250409
  Serious: Yes (Hospitalization)
  Sender: BEIGENE
  Company Number: CA-BEIGENE-BGN-2025-001017

PATIENT
  Age: 58 Year

DRUGS (8)
  1. BRUKINSA [Suspect]
     Active Substance: ZANUBRUTINIB
     Indication: Mantle cell lymphoma
     Dosage: 160 MILLIGRAM, BID
  2. BRUKINSA [Suspect]
     Active Substance: ZANUBRUTINIB
     Dosage: 160 MILLIGRAM, BID
  3. EZETIMIBE [Concomitant]
     Active Substance: EZETIMIBE
  4. HYDROXYCHLOROQUINE [Concomitant]
     Active Substance: HYDROXYCHLOROQUINE
  5. ROSUVASTATIN [Concomitant]
     Active Substance: ROSUVASTATIN
  6. VITAMIN B12 [Concomitant]
     Active Substance: CYANOCOBALAMIN
  7. ACYCLOVIR [Concomitant]
     Active Substance: ACYCLOVIR
  8. FILGRASTIM [Concomitant]
     Active Substance: FILGRASTIM
     Dosage: 480 MICROGRAM, QWK

REACTIONS (3)
  - Central nervous system lymphoma [Unknown]
  - Intracranial tumour haemorrhage [Unknown]
  - Alanine aminotransferase decreased [Unknown]
